FAERS Safety Report 9398652 (Version 1)
Quarter: 2013Q3

REPORT INFORMATION
  Report Type: Report from Study
  Country: US (occurrence: US)
  Receive Date: 20130712
  Receipt Date: 20130712
  Transmission Date: 20140515
  Serious: Yes (Other)
  Sender: FDA-Public Use
  Company Number: US-BRISTOL-MYERS SQUIBB COMPANY-19079268

PATIENT
  Sex: 0

DRUGS (2)
  1. REYATAZ [Suspect]
     Indication: HIV INFECTION
  2. RITONAVIR [Interacting]
     Indication: HIV INFECTION

REACTIONS (2)
  - Alanine aminotransferase increased [Unknown]
  - Drug interaction [Unknown]
